FAERS Safety Report 26202755 (Version 1)
Quarter: 2025Q4

REPORT INFORMATION
  Report Type: Spontaneous
  Country: JP (occurrence: JP)
  Receive Date: 20251226
  Receipt Date: 20251226
  Transmission Date: 20260117
  Serious: Yes (Hospitalization, Other)
  Sender: PHARMOBEDIENT CONSULTING, LLC
  Company Number: JP-Pharmobedient-000710

PATIENT
  Age: 58 Year
  Sex: Male
  Weight: 70 kg

DRUGS (6)
  1. ACYCLOVIR [Suspect]
     Active Substance: ACYCLOVIR
     Indication: Herpes simplex
     Dosage: 2250 MG/DAY
  2. LEVETIRACETAM [Concomitant]
     Active Substance: LEVETIRACETAM
     Indication: Status epilepticus
     Dosage: 1000 MG/DAY
  3. FENTANYL [Concomitant]
     Active Substance: FENTANYL
     Indication: Analgesic therapy
  4. PROPOFOL [Concomitant]
     Active Substance: PROPOFOL
     Indication: Sedation
  5. INSULIN NOS [Concomitant]
     Active Substance: INSULIN NOS
     Indication: Blood glucose abnormal
  6. HEPARIN [Concomitant]
     Active Substance: HEPARIN SODIUM
     Indication: Prophylaxis

REACTIONS (3)
  - Drug resistance [Unknown]
  - Disease recurrence [Recovered/Resolved]
  - Encephalitis herpes [Recovered/Resolved]
